FAERS Safety Report 15960925 (Version 1)
Quarter: 2019Q1

REPORT INFORMATION
  Report Type: Spontaneous
  Country: US (occurrence: US)
  Receive Date: 20190214
  Receipt Date: 20190214
  Transmission Date: 20190417
  Serious: No
  Sender: FDA-Public Use
  Company Number: US-MYLANLABS-2019M1009537

PATIENT

DRUGS (1)
  1. OMEPRAZOLE DELAYED-RELEASE CAPSULES, USP [Suspect]
     Active Substance: OMEPRAZOLE
     Indication: GASTROOESOPHAGEAL REFLUX DISEASE
     Dosage: UNK UNK, QD
     Route: 048
     Dates: start: 20181009

REACTIONS (3)
  - Back pain [Unknown]
  - Product solubility abnormal [Unknown]
  - Chest pain [Unknown]
